FAERS Safety Report 13969599 (Version 1)
Quarter: 2017Q3

REPORT INFORMATION
  Report Type: Spontaneous
  Country: US (occurrence: US)
  Receive Date: 20170914
  Receipt Date: 20170914
  Transmission Date: 20171128
  Serious: No
  Sender: FDA-Public Use
  Company Number: US-INTERPRAG-PM-OCA2017-00601

PATIENT

DRUGS (7)
  1. MYCOPHENOLAT 1A PHARMA [Concomitant]
  2. OCALIVA [Suspect]
     Active Substance: OBETICHOLIC ACID
     Indication: BILIARY CIRRHOSIS PRIMARY
     Dosage: 5 MG, QD
     Route: 048
     Dates: start: 20170515
  3. METAMUCIL [Concomitant]
     Active Substance: PLANTAGO SEED
  4. HYDROCODONE [Concomitant]
     Active Substance: HYDROCODONE
  5. ASPIRIN                            /00002701/ [Concomitant]
     Active Substance: ASPIRIN
  6. RESTASIS [Concomitant]
     Active Substance: CYCLOSPORINE
  7. URSODIOL. [Concomitant]
     Active Substance: URSODIOL

REACTIONS (4)
  - Drug dose omission [Unknown]
  - Constipation [Unknown]
  - Dysgeusia [Unknown]
  - Foot operation [Unknown]

NARRATIVE: CASE EVENT DATE: 201706
